FAERS Safety Report 9903756 (Version 1)
Quarter: 2014Q1

REPORT INFORMATION
  Report Type: Spontaneous
  Country: CH (occurrence: CH)
  Receive Date: 20140218
  Receipt Date: 20140218
  Transmission Date: 20141002
  Serious: Yes (Hospitalization)
  Sender: FDA-Public Use
  Company Number: CH-ROCHE-1346445

PATIENT
  Age: 64 Year
  Sex: Male

DRUGS (14)
  1. BACTRIM [Suspect]
     Indication: IMMUNOSUPPRESSION
     Dosage: STRENGTH:800MG/160MG
     Route: 048
     Dates: start: 201309
  2. CELLCEPT [Interacting]
     Indication: PRODUCT USED FOR UNKNOWN INDICATION
     Route: 048
  3. VALCYTE [Interacting]
     Indication: IMMUNOSUPPRESSION
     Dosage: 1DF
     Route: 048
     Dates: start: 201309
  4. VANCOCIN [Interacting]
     Indication: PRODUCT USED FOR UNKNOWN INDICATION
     Route: 041
     Dates: start: 20130828, end: 20130906
  5. MEROPENEM [Interacting]
     Indication: PRODUCT USED FOR UNKNOWN INDICATION
     Route: 041
     Dates: start: 20130828, end: 20130909
  6. SANDIMMUN NEORAL [Interacting]
     Indication: PRODUCT USED FOR UNKNOWN INDICATION
     Route: 048
  7. KLACID (SWITZERLAND) [Interacting]
     Indication: PRODUCT USED FOR UNKNOWN INDICATION
     Route: 048
     Dates: start: 201309, end: 201309
  8. VALTREX [Interacting]
     Indication: PRODUCT USED FOR UNKNOWN INDICATION
     Route: 048
  9. PREDNISONE [Concomitant]
     Route: 048
  10. SPORANOX [Concomitant]
     Route: 048
  11. ZANTIC [Concomitant]
     Route: 048
  12. MOTILIUM [Concomitant]
     Route: 048
  13. 5-FLUOROURACIL [Concomitant]
  14. CIPROFLOXACIN [Concomitant]

REACTIONS (4)
  - Anaemia [Recovering/Resolving]
  - Thrombocytopenia [Recovered/Resolved]
  - Drug interaction [Recovered/Resolved]
  - Drug level increased [Recovered/Resolved]
